FAERS Safety Report 6270721-7 (Version None)
Quarter: 2009Q3

REPORT INFORMATION
  Report Type: 
  Country: None (occurrence: None)
  Receive Date: 20090716
  Receipt Date: 20090702
  Transmission Date: 20100115
  Serious: Yes (Other)
  Sender: FDA-Public Use
  Company Number: SE-AMGEN-UK355677

PATIENT
  Sex: Female
  Weight: 79 kg

DRUGS (22)
  1. ARANESP [Suspect]
     Indication: RENAL FAILURE CHRONIC
  2. TRIOBE [Concomitant]
     Route: 048
     Dates: start: 20081030
  3. VITAMINS, OTHER COMBINATIONS [Concomitant]
     Route: 048
     Dates: start: 20090104
  4. CALCIUM CARBONATE [Concomitant]
     Route: 048
     Dates: start: 20090104
  5. SOLVEZINK [Concomitant]
     Route: 048
     Dates: start: 20090218
  6. FOLACIN [Concomitant]
     Route: 048
     Dates: start: 20081015
  7. LEVOTHYROXINE SODIUM [Concomitant]
     Route: 048
     Dates: start: 20090102
  8. ALVEDON [Concomitant]
     Route: 048
     Dates: start: 20090102
  9. AMOXICILLIN [Concomitant]
     Route: 048
     Dates: start: 20090108, end: 20090118
  10. ZITHROMAX [Concomitant]
     Route: 048
     Dates: start: 20090105, end: 20090108
  11. BETAPRED [Concomitant]
     Dates: start: 20090217, end: 20090218
  12. CLINDAMYCIN [Concomitant]
     Route: 048
     Dates: start: 20090131
  13. FELODIPINE [Concomitant]
     Dates: start: 20090219
  14. DALTEPARIN SODIUM [Concomitant]
     Dates: start: 20081030
  15. FURIX [Concomitant]
     Dates: start: 20081212
  16. KYTRIL [Concomitant]
     Dates: start: 20090210
  17. INSULIN [Concomitant]
  18. TRANDATE [Concomitant]
     Route: 048
     Dates: start: 20081030
  19. ASPIRIN [Concomitant]
     Route: 048
     Dates: start: 20081007
  20. VENOFER [Concomitant]
     Route: 042
     Dates: start: 20090107
  21. ZINACEF [Concomitant]
     Route: 042
     Dates: start: 20090103, end: 20090108
  22. SODIUM BICARBONATE [Concomitant]
     Route: 048
     Dates: start: 20081112, end: 20090108

REACTIONS (4)
  - CAESAREAN SECTION [None]
  - PNEUMONIA [None]
  - PREMATURE LABOUR [None]
  - RENAL FAILURE [None]
